FAERS Safety Report 18606179 (Version 1)
Quarter: 2020Q4

REPORT INFORMATION
  Report Type: Spontaneous
  Country: US (occurrence: US)
  Receive Date: 20201211
  Receipt Date: 20201211
  Transmission Date: 20210114
  Serious: No
  Sender: FDA-Public Use
  Company Number: US-TEVA-2020-US-1857456

PATIENT
  Sex: Female

DRUGS (1)
  1. ESTRADIOL TEVA [Suspect]
     Active Substance: ESTRADIOL
     Indication: HORMONE REPLACEMENT THERAPY
     Dosage: .5 MILLIGRAM DAILY;
     Route: 048
     Dates: start: 2019

REACTIONS (7)
  - Pain in extremity [Unknown]
  - Flushing [Unknown]
  - Feeling of body temperature change [Unknown]
  - Vulvovaginal dryness [Unknown]
  - Myalgia [Unknown]
  - Joint swelling [Unknown]
  - Insomnia [Unknown]
